FAERS Safety Report 17482960 (Version 3)
Quarter: 2020Q2

REPORT INFORMATION
  Report Type: Spontaneous
  Country: US (occurrence: US)
  Receive Date: 20200302
  Receipt Date: 20200430
  Transmission Date: 20200713
  Serious: No
  Sender: FDA-Public Use
  Company Number: US-PFIZER INC-2020087846

PATIENT
  Age: 64 Year
  Sex: Female
  Weight: 86 kg

DRUGS (2)
  1. IBRANCE [Suspect]
     Active Substance: PALBOCICLIB
     Indication: BREAST CANCER
     Dosage: 125 MG, CYCLIC (ON 21 DAYS, OFF 7 DAYS)
  2. LETROZOLE. [Concomitant]
     Active Substance: LETROZOLE
     Dosage: UNK

REACTIONS (8)
  - Dysgeusia [Unknown]
  - Dyspepsia [Unknown]
  - Hypertension [Unknown]
  - Eructation [Recovered/Resolved]
  - Accident [Unknown]
  - Chest discomfort [Unknown]
  - Oral disorder [Unknown]
  - Foreign body in throat [Unknown]
